FAERS Safety Report 16196770 (Version 1)
Quarter: 2019Q2

REPORT INFORMATION
  Report Type: Spontaneous
  Country: US (occurrence: US)
  Receive Date: 20190311
  Receipt Date: 20190311
  Transmission Date: 20190711
  Serious: No
  Sender: FDA-Public Use
  Company Number: None

PATIENT
  Age: 54 Year
  Sex: Female

DRUGS (1)
  1. ENBREL [Suspect]
     Active Substance: ETANERCEPT
     Dates: start: 20100311

REACTIONS (3)
  - Injection site reaction [None]
  - Injection site swelling [None]
  - Injection site pruritus [None]

NARRATIVE: CASE EVENT DATE: 20190201
